FAERS Safety Report 6161151-7 (Version None)
Quarter: 2009Q2

REPORT INFORMATION
  Report Type: 
  Country: None (occurrence: None)
  Receive Date: 20090416
  Receipt Date: 20090403
  Transmission Date: 20091009
  Serious: Yes (Hospitalization, Congenital Anomaly)
  Sender: FDA-Public Use
  Company Number: B0568316A

PATIENT
  Sex: Female

DRUGS (3)
  1. LAMOTRIGINE [Suspect]
     Indication: CONVULSION
  2. OXCARBAZEPINE [Suspect]
     Indication: CONVULSION
  3. CARBAZEPINE [Suspect]
     Indication: CONVULSION

REACTIONS (13)
  - ABNORMAL PALMAR/PLANTAR CREASES [None]
  - APGAR SCORE LOW [None]
  - CAESAREAN SECTION [None]
  - DYSMORPHISM [None]
  - EXTREMITY CONTRACTURE [None]
  - FEEDING DISORDER NEONATAL [None]
  - HEAD CIRCUMFERENCE ABNORMAL [None]
  - HYPERTELORISM OF ORBIT [None]
  - HYPOGLYCAEMIA NEONATAL [None]
  - LIMB HYPOPLASIA CONGENITAL [None]
  - LOW SET EARS [None]
  - MATERNAL DRUGS AFFECTING FOETUS [None]
  - SMALL FOR DATES BABY [None]
